FAERS Safety Report 8257614-0 (Version None)
Quarter: 2012Q2

REPORT INFORMATION
  Report Type: 
  Country: None (occurrence: None)
  Receive Date: 20120403
  Receipt Date: 20120329
  Transmission Date: 20120825
  Serious: Yes (Death, Hospitalization)
  Sender: FDA-Public Use
  Company Number: JP-TEVA-2011004254

PATIENT
  Age: 44 Year
  Sex: Male

DRUGS (3)
  1. TREANDA [Suspect]
  2. RITUXIMAB [Concomitant]
     Indication: NON-HODGKIN'S LYMPHOMA
     Dates: start: 20110728, end: 20110728
  3. TREANDA [Suspect]
     Indication: B-CELL LYMPHOMA
     Route: 042
     Dates: start: 20110729, end: 20111216

REACTIONS (4)
  - CYTOMEGALOVIRUS INFECTION [None]
  - NAUSEA [None]
  - PNEUMOCYSTIS JIROVECI PNEUMONIA [None]
  - PLATELET COUNT DECREASED [None]
